FAERS Safety Report 4977661-1 (Version None)
Quarter: 2006Q2

REPORT INFORMATION
  Report Type: 
  Country: None (occurrence: None)
  Receive Date: 20060420
  Receipt Date: 20060407
  Transmission Date: 20061013
  Serious: Yes (Other)
  Sender: FDA-Public Use
  Company Number: PHBS2006CH05478

PATIENT
  Sex: Male

DRUGS (2)
  1. CARBAMAZEPINE [Suspect]
     Indication: COMPLEX PARTIAL SEIZURES
     Dosage: 1200 MG/DAY
     Route: 065
  2. TOPIRAMATE [Concomitant]
     Indication: COMPLEX PARTIAL SEIZURES
     Dosage: 50 MG/DAY
     Route: 065

REACTIONS (2)
  - CELL-MEDIATED CYTOTOXICITY [None]
  - NUCLEAR MAGNETIC RESONANCE IMAGING BRAIN ABNORMAL [None]
